FAERS Safety Report 23689526 (Version 1)
Quarter: 2024Q1

REPORT INFORMATION
  Report Type: Spontaneous
  Country: US (occurrence: None)
  Receive Date: 20240331
  Receipt Date: 20240331
  Transmission Date: 20240410
  Serious: Yes (Hospitalization)
  Sender: FDA-Public Use
  Company Number: US-ROCHE-3524427

PATIENT
  Age: 40 Year
  Sex: Female
  Weight: 102.15 kg

DRUGS (11)
  1. XOLAIR [Suspect]
     Active Substance: OMALIZUMAB
     Indication: Chronic spontaneous urticaria
     Dosage: TWO 150 MG DOSES FOR A TOTAL OF 300 MG
     Route: 058
     Dates: start: 20240218, end: 20240218
  2. XOLAIR [Suspect]
     Active Substance: OMALIZUMAB
  3. XOLAIR [Suspect]
     Active Substance: OMALIZUMAB
     Indication: Urticaria
  4. XOLAIR [Suspect]
     Active Substance: OMALIZUMAB
  5. ZYRTEC [Concomitant]
     Active Substance: CETIRIZINE HYDROCHLORIDE
  6. DAPSONE [Concomitant]
     Active Substance: DAPSONE
  7. MONTELUKAST [Concomitant]
     Active Substance: MONTELUKAST SODIUM
  8. SYMBICORT [Concomitant]
     Active Substance: BUDESONIDE\FORMOTEROL FUMARATE DIHYDRATE
  9. PEPCID [Concomitant]
     Active Substance: FAMOTIDINE
  10. PREDNISONE [Concomitant]
     Active Substance: PREDNISONE
  11. NAPROXEN [Concomitant]
     Active Substance: NAPROXEN

REACTIONS (8)
  - Pyrexia [Not Recovered/Not Resolved]
  - Contusion [Recovered/Resolved]
  - Chills [Recovered/Resolved]
  - Chest pain [Unknown]
  - Sputum increased [Unknown]
  - Nausea [Unknown]
  - Urticaria [Unknown]
  - Illness [Unknown]

NARRATIVE: CASE EVENT DATE: 20240306
